FAERS Safety Report 13666255 (Version 1)
Quarter: 2017Q2

REPORT INFORMATION
  Report Type: Spontaneous
  Country: US (occurrence: US)
  Receive Date: 20170619
  Receipt Date: 20170619
  Transmission Date: 20170830
  Serious: Yes (Other)
  Sender: FDA-Public Use
  Company Number: US-ROCHE-771253

PATIENT
  Age: 67 Year
  Sex: Female

DRUGS (9)
  1. PROCHLORPERAZINE. [Concomitant]
     Active Substance: PROCHLORPERAZINE
     Route: 065
  2. GABAPENTIN. [Concomitant]
     Active Substance: GABAPENTIN
     Route: 065
  3. XELODA [Suspect]
     Active Substance: CAPECITABINE
     Indication: BREAST CANCER
     Route: 048
     Dates: start: 20101225, end: 201101
  4. TYLENOL WITH CODEINE [Concomitant]
     Active Substance: ACETAMINOPHEN\CODEINE PHOSPHATE
     Route: 065
  5. IMODIUM [Concomitant]
     Active Substance: LOPERAMIDE HYDROCHLORIDE
     Dosage: LOPERAMIDE HYDROCHLORIDE
     Route: 065
  6. TYKERB [Suspect]
     Active Substance: LAPATINIB DITOSYLATE
     Indication: BREAST CANCER
     Route: 048
  7. IBUPROFEN. [Concomitant]
     Active Substance: IBUPROFEN
     Route: 065
  8. FAMOTIDINE. [Concomitant]
     Active Substance: FAMOTIDINE
     Route: 065
  9. LOMOTIL [Concomitant]
     Active Substance: ATROPINE SULFATE\DIPHENOXYLATE HYDROCHLORIDE
     Route: 065

REACTIONS (11)
  - Haemorrhage [Recovering/Resolving]
  - Condition aggravated [Recovering/Resolving]
  - Ear haemorrhage [Recovering/Resolving]
  - Decreased appetite [Recovering/Resolving]
  - Mouth haemorrhage [Recovering/Resolving]
  - Weight decreased [Recovering/Resolving]
  - Dysgeusia [Recovering/Resolving]
  - Oral pain [Recovering/Resolving]
  - Diarrhoea [Not Recovered/Not Resolved]
  - Skin disorder [Recovering/Resolving]
  - Oropharyngeal blistering [Recovering/Resolving]

NARRATIVE: CASE EVENT DATE: 20110101
